FAERS Safety Report 4524945-7 (Version None)
Quarter: 2004Q4

REPORT INFORMATION
  Report Type: 
  Country: None (occurrence: None)
  Receive Date: 20041208
  Receipt Date: 20041126
  Transmission Date: 20050328
  Serious: Yes (Disabling)
  Sender: FDA-Public Use
  Company Number: 2004073851

PATIENT
  Age: 66 Year
  Sex: Female

DRUGS (11)
  1. GEODON [Suspect]
     Indication: ILL-DEFINED DISORDER
     Dates: start: 20040716, end: 20040818
  2. BUPROPION HYDROCHLORIDE [Concomitant]
  3. LITHIUM [Concomitant]
  4. ISOPHANE INSULIN [Concomitant]
  5. METFORMIN HCL [Concomitant]
  6. GLYBURIDE [Concomitant]
  7. PRAVASTATIN SODIUM [Concomitant]
  8. LITHIUM CARBONATE [Concomitant]
  9. ALPRAZOLAM [Concomitant]
  10. INSULIN GLARGINE [Concomitant]
  11. VENLAFAXINE HYDROCHLORIDE [Concomitant]

REACTIONS (5)
  - ATAXIA [None]
  - BALANCE DISORDER [None]
  - DIFFICULTY IN WALKING [None]
  - EXTRAPYRAMIDAL DISORDER [None]
  - TREMOR [None]
